FAERS Safety Report 8248812-0 (Version None)
Quarter: 2012Q2

REPORT INFORMATION
  Report Type: 
  Country: None (occurrence: None)
  Receive Date: 20120401
  Receipt Date: 20120323
  Transmission Date: 20120825
  Serious: Yes (Hospitalization, Other)
  Sender: FDA-Public Use
  Company Number: PHHY2012IT025570

PATIENT
  Age: 15 Year
  Sex: Female

DRUGS (2)
  1. ETOPOSIDE [Suspect]
     Indication: NEUROBLASTOMA RECURRENT
  2. CARBOPLATIN [Suspect]
     Indication: NEUROBLASTOMA RECURRENT

REACTIONS (10)
  - GASTROOESOPHAGEAL REFLUX DISEASE [None]
  - BARRETT'S OESOPHAGUS [None]
  - GASTRIC MUCOSAL LESION [None]
  - OESOPHAGITIS [None]
  - DYSPEPSIA [None]
  - HAEMATEMESIS [None]
  - ABDOMINAL PAIN UPPER [None]
  - VOMITING [None]
  - MUCOSAL INFLAMMATION [None]
  - METAPLASIA [None]
